FAERS Safety Report 12094006 (Version 4)
Quarter: 2016Q2

REPORT INFORMATION
  Report Type: Spontaneous
  Country: US (occurrence: US)
  Receive Date: 20160219
  Receipt Date: 20160510
  Transmission Date: 20160815
  Serious: Yes (Other)
  Sender: FDA-Public Use
  Company Number: US-GLAXOSMITHKLINE-US2016GSK019852

PATIENT
  Sex: Female
  Weight: 60.38 kg

DRUGS (22)
  1. ADVAIR HFA [Suspect]
     Active Substance: FLUTICASONE PROPIONATE\SALMETEROL XINAFOATE
     Indication: EMPHYSEMA
     Dosage: 1 PUFF(S), BID
     Route: 055
     Dates: start: 20110219
  2. OXYCODONE [Concomitant]
     Active Substance: OXYCODONE
  3. KEFLEX [Suspect]
     Active Substance: CEPHALEXIN
     Indication: PRODUCT USED FOR UNKNOWN INDICATION
  4. METOPROLOL. [Concomitant]
     Active Substance: METOPROLOL
     Indication: ESSENTIAL HYPERTENSION
  5. LIDOCAINE. [Concomitant]
     Active Substance: LIDOCAINE
  6. INFLUENZA VACCINE [Concomitant]
     Active Substance: INFLUENZA VIRUS VACCINE
     Indication: ANTIVIRAL PROPHYLAXIS
     Dosage: UNK
     Dates: start: 20151216, end: 20151216
  7. SINGULAIR [Concomitant]
     Active Substance: MONTELUKAST SODIUM
  8. ADVAIR HFA [Suspect]
     Active Substance: FLUTICASONE PROPIONATE\SALMETEROL XINAFOATE
     Indication: CHRONIC OBSTRUCTIVE PULMONARY DISEASE
  9. MORPHINE [Suspect]
     Active Substance: MORPHINE
  10. ASPIRIN. [Concomitant]
     Active Substance: ASPIRIN
  11. ALPRAZOLAM. [Concomitant]
     Active Substance: ALPRAZOLAM
     Dosage: UNK
  12. ALLEGRA [Concomitant]
     Active Substance: FEXOFENADINE HYDROCHLORIDE
  13. CODEINE PHOSPHATE [Suspect]
     Active Substance: CODEINE PHOSPHATE
     Indication: PRODUCT USED FOR UNKNOWN INDICATION
  14. IMITREX [Suspect]
     Active Substance: SUMATRIPTAN SUCCINATE
     Indication: PRODUCT USED FOR UNKNOWN INDICATION
  15. ALBUTEROL. [Concomitant]
     Active Substance: ALBUTEROL
  16. OXYGEN. [Concomitant]
     Active Substance: OXYGEN
  17. LISINOPRIL. [Concomitant]
     Active Substance: LISINOPRIL
     Indication: ESSENTIAL HYPERTENSION
  18. ZOLOFT [Concomitant]
     Active Substance: SERTRALINE HYDROCHLORIDE
     Indication: DEPRESSION
     Dosage: 200 MG, 1D
     Route: 048
  19. GABAPENTIN. [Suspect]
     Active Substance: GABAPENTIN
     Indication: PRODUCT USED FOR UNKNOWN INDICATION
  20. FLONASE [Concomitant]
     Active Substance: FLUTICASONE PROPIONATE
     Indication: RHINITIS ALLERGIC
     Dosage: UNK, PRN
  21. SENNA [Concomitant]
     Active Substance: SENNA LEAF\SENNOSIDES\SENNOSIDES A AND B
  22. LIPITOR [Concomitant]
     Active Substance: ATORVASTATIN CALCIUM

REACTIONS (13)
  - Adverse event [Unknown]
  - Condition aggravated [Unknown]
  - Depression [Unknown]
  - Stress [Unknown]
  - Hallucination [Unknown]
  - Drug hypersensitivity [Unknown]
  - Balance disorder [Unknown]
  - Psychiatric symptom [Unknown]
  - Anxiety [Unknown]
  - Hypertension [Unknown]
  - Gastric haemorrhage [Unknown]
  - Panic attack [Unknown]
  - Urticaria [Unknown]
